FAERS Safety Report 7438711-6 (Version None)
Quarter: 2011Q2

REPORT INFORMATION
  Report Type: 
  Country: None (occurrence: None)
  Receive Date: 20110426
  Receipt Date: 20110420
  Transmission Date: 20111010
  Serious: Yes (Life-Threatening, Hospitalization, Other)
  Sender: FDA-Public Use
  Company Number: FR-PFIZER INC-2011000250

PATIENT
  Age: 65 Year
  Sex: Male
  Weight: 110 kg

DRUGS (3)
  1. FELDENE [Suspect]
     Indication: OSTEOARTHRITIS
     Dosage: 20 MG, 1X/DAY
     Route: 048
     Dates: start: 20101205, end: 20101206
  2. BIPRETERAX [Concomitant]
     Indication: HYPERTENSION
     Dosage: UNK
  3. FELDENE [Suspect]
     Indication: BACK PAIN

REACTIONS (12)
  - MALAISE [None]
  - HEPATIC STEATOSIS [None]
  - TOXICITY TO VARIOUS AGENTS [None]
  - REFRACTORY ANAEMIA WITH AN EXCESS OF BLASTS [None]
  - HYPERSPLENISM [None]
  - GASTROINTESTINAL HAEMORRHAGE [None]
  - MELAENA [None]
  - PANCYTOPENIA [None]
  - ANGINA PECTORIS [None]
  - ANXIETY [None]
  - LOSS OF CONSCIOUSNESS [None]
  - MENTAL DISORDER [None]
